FAERS Safety Report 25835777 (Version 1)
Quarter: 2025Q3

REPORT INFORMATION
  Report Type: Report from Study
  Country: UA (occurrence: UA)
  Receive Date: 20250923
  Receipt Date: 20250923
  Transmission Date: 20251021
  Serious: Yes (Death, Other)
  Sender: PFIZER
  Company Number: UA-TAKEDA-2025TUS077271

PATIENT
  Age: 77 Year
  Sex: Male

DRUGS (1)
  1. ADCETRIS [Suspect]
     Active Substance: BRENTUXIMAB VEDOTIN
     Indication: T-cell lymphoma
     Dosage: UNK UNK, Q3WEEKS
     Route: 042
     Dates: start: 20250331

REACTIONS (2)
  - Death [Fatal]
  - Wheezing [Unknown]

NARRATIVE: CASE EVENT DATE: 20250101
